FAERS Safety Report 23980845 (Version 1)
Quarter: 2024Q2

REPORT INFORMATION
  Report Type: Spontaneous
  Country: JP (occurrence: JP)
  Receive Date: 20240617
  Receipt Date: 20240617
  Transmission Date: 20240716
  Serious: Yes (Hospitalization, Other)
  Sender: FDA-Public Use
  Company Number: JP-GENMAB-2024-00770AA

PATIENT
  Age: 8 Decade
  Sex: Female

DRUGS (7)
  1. EPKINLY [Suspect]
     Active Substance: EPCORITAMAB-BYSP
     Indication: Diffuse large B-cell lymphoma
     Dosage: 0.16 MILLIGRAM, SINGLE
     Route: 058
     Dates: start: 20240221, end: 20240221
  2. EPKINLY [Suspect]
     Active Substance: EPCORITAMAB-BYSP
     Dosage: 0.8 MILLIGRAM, SINGLE
     Route: 058
     Dates: start: 20240228, end: 20240228
  3. EPKINLY [Suspect]
     Active Substance: EPCORITAMAB-BYSP
     Dosage: 48 MILLIGRAM, THE THIRD ADMINISTRATION
     Route: 058
     Dates: start: 20240306, end: 20240306
  4. EPKINLY [Suspect]
     Active Substance: EPCORITAMAB-BYSP
     Dosage: 48 MILLIGRAM, AFTER THE FOURTH ADMINISTRATION
     Route: 058
     Dates: start: 20240327, end: 20240529
  5. PREDONINE [Concomitant]
     Active Substance: PREDNISOLONE
     Indication: Prophylaxis
     Dosage: 100 MILLIGRAM, ON DAY 1, DAY 2, DAY 3 AND DAY 4 OF ADMINISTRATION OF EPKINLY
     Dates: start: 20240221
  6. DIPHENHYDRAMINE [Concomitant]
     Active Substance: DIPHENHYDRAMINE
     Indication: Prophylaxis
     Dosage: 50 MILLIGRAM, ON DAY 1 OF ADMINISTRATION OF EPKINLY
     Dates: start: 20240221
  7. ACETAMINOPHEN [Concomitant]
     Active Substance: ACETAMINOPHEN
     Indication: Prophylaxis
     Dosage: 700 MILLIGRAM, ON DAY 1 OF ADMINISTRATION OF EPKINLY
     Dates: start: 20240221

REACTIONS (4)
  - Neutrophil count decreased [Recovered/Resolved]
  - Cytokine release syndrome [Recovered/Resolved]
  - Diffuse large B-cell lymphoma [Unknown]
  - Fatigue [Not Recovered/Not Resolved]

NARRATIVE: CASE EVENT DATE: 20240307
